FAERS Safety Report 23906365 (Version 10)
Quarter: 2025Q3

REPORT INFORMATION
  Report Type: Spontaneous
  Country: EU (occurrence: EU)
  Receive Date: 20240528
  Receipt Date: 20250924
  Transmission Date: 20251020
  Serious: Yes (Hospitalization, Disabling, Other)
  Sender: SANOFI AVENTIS
  Company Number: EU-GEN-2024-2088

PATIENT
  Age: 24 Year
  Sex: Male

DRUGS (18)
  1. ESCITALOPRAM OXALATE [Interacting]
     Active Substance: ESCITALOPRAM OXALATE
     Indication: Depression
     Dosage: 10 MG, QD
     Route: 048
  2. ESCITALOPRAM OXALATE [Interacting]
     Active Substance: ESCITALOPRAM OXALATE
     Indication: Insomnia
  3. LEVOFLOXACIN [Interacting]
     Active Substance: LEVOFLOXACIN
     Indication: Painful ejaculation
     Dosage: 1000 MG, ONCE DAILY (2 ? 500 MG)
     Route: 048
  4. LEVOFLOXACIN [Interacting]
     Active Substance: LEVOFLOXACIN
     Indication: Depression
  5. LEVOFLOXACIN [Interacting]
     Active Substance: LEVOFLOXACIN
     Indication: Perineal pain
  6. CIPROFLOXACIN HYDROCHLORIDE [Interacting]
     Active Substance: CIPROFLOXACIN HYDROCHLORIDE
     Indication: Painful ejaculation
     Dosage: 1000 MG, ONCE DAILY (2 ? 500 MG)
     Route: 048
  7. VALPROIC ACID [Suspect]
     Active Substance: VALPROIC ACID
     Indication: Painful ejaculation
  8. VALPROIC ACID [Suspect]
     Active Substance: VALPROIC ACID
     Indication: Pain
  9. VALPROIC ACID [Suspect]
     Active Substance: VALPROIC ACID
     Indication: Pudendal canal syndrome
  10. TAMSULOSIN HYDROCHLORIDE [Suspect]
     Active Substance: TAMSULOSIN HYDROCHLORIDE
     Indication: Painful ejaculation
     Dosage: 0.4 MG, HS (SUSTAINED RELEASE)
  11. TAMSULOSIN HYDROCHLORIDE [Suspect]
     Active Substance: TAMSULOSIN HYDROCHLORIDE
     Indication: Perineal pain
  12. MIANSERIN [Interacting]
     Active Substance: MIANSERIN
     Indication: Depression
     Route: 065
  13. MIANSERIN [Interacting]
     Active Substance: MIANSERIN
     Indication: Insomnia
  14. MIANSERIN [Interacting]
     Active Substance: MIANSERIN
     Indication: Anxiety
  15. VORTIOXETINE [Concomitant]
     Active Substance: VORTIOXETINE
     Indication: Depression
  16. ALPRAZOLAM [Concomitant]
     Active Substance: ALPRAZOLAM
     Indication: Anxiety
  17. MELATONIN [Concomitant]
     Active Substance: MELATONIN
     Indication: Depression
  18. MELATONIN [Concomitant]
     Active Substance: MELATONIN
     Indication: Insomnia

REACTIONS (5)
  - Painful ejaculation [Recovered/Resolved]
  - Condition aggravated [Recovered/Resolved]
  - Drug interaction [Recovered/Resolved]
  - Perineal pain [Recovering/Resolving]
  - Off label use [Unknown]
